FAERS Safety Report 5662695-4 (Version None)
Quarter: 2008Q1

REPORT INFORMATION
  Report Type: 
  Country: None (occurrence: None)
  Receive Date: 20080313
  Receipt Date: 20080303
  Transmission Date: 20080703
  Serious: Yes (Life-Threatening, Hospitalization, Disabling, Other)
  Sender: FDA-Public Use
  Company Number: US-KINGPHARMUSA00001-K200601245

PATIENT

DRUGS (20)
  1. ALTACE [Suspect]
     Dosage: UNK, UNK
     Dates: end: 20060501
  2. EPOGEN [Suspect]
     Indication: DIALYSIS
     Dosage: UNK, UNK
     Route: 042
  3. EPOGEN [Suspect]
     Dosage: 33300 IU, TIW
     Route: 042
     Dates: start: 20041105, end: 20060501
  4. EPOGEN [Suspect]
     Dosage: 20000 IU, TIW
     Route: 058
     Dates: start: 20061222
  5. CLOPIDOGREL BISULFATE [Suspect]
     Dates: end: 20060501
  6. QUININE [Suspect]
     Dates: end: 20060501
  7. ASPIRIN [Suspect]
     Dates: start: 20041101, end: 20060501
  8. HEPARIN [Suspect]
     Dates: end: 20060501
  9. ZOLPIDEM TARTRATE [Concomitant]
     Dates: start: 20041101
  10. CARVEDILOL [Concomitant]
  11. VITAMINS [Concomitant]
  12. INSULIN [Concomitant]
  13. ATORVASTATIN CALCIUM [Concomitant]
  14. LORAZEPAM [Concomitant]
  15. PREDNISONE [Concomitant]
  16. SEVELAMER HYDROCHLORIDE [Concomitant]
  17. SINEMET [Concomitant]
  18. TUMS /00108001/ [Concomitant]
  19. AZATHIOPRINE [Concomitant]
     Dates: start: 19930101, end: 20050101
  20. CYCLOSPORINE [Concomitant]
     Dates: start: 19930101, end: 20050101

REACTIONS (10)
  - APLASTIC ANAEMIA [None]
  - CARDIO-RESPIRATORY ARREST [None]
  - CARNITINE DECREASED [None]
  - DIABETIC COMPLICATION [None]
  - IMPAIRED HEALING [None]
  - LEG AMPUTATION [None]
  - LEUKOPENIA [None]
  - THERAPEUTIC RESPONSE DECREASED [None]
  - THROMBOCYTOPENIA [None]
  - TRANSPLANT FAILURE [None]
